FAERS Safety Report 10067309 (Version 1)
Quarter: 2014Q2

REPORT INFORMATION
  Report Type: Spontaneous
  Country: ZA (occurrence: None)
  Receive Date: 20140407
  Receipt Date: 20140407
  Transmission Date: 20141212
  Serious: Yes (Other)
  Sender: FDA-Public Use
  Company Number: AUR-APL-2014-04025

PATIENT
  Age: 34 Year
  Sex: Male

DRUGS (9)
  1. LAMIVUDINE [Suspect]
     Indication: ANTIRETROVIRAL THERAPY
  2. EFAVIRENZ (EFAVIRENZ) [Suspect]
     Indication: ANTIRETROVIRAL THERAPY
  3. TENOFOVIR [Suspect]
     Indication: ANTIRETROVIRAL THERAPY
  4. KANAMYCIN [Suspect]
     Indication: TUBERCULOSIS
  5. MOXIFLOXACIN [Suspect]
     Indication: TUBERCULOSIS
  6. ETHIONAMIDE [Suspect]
     Indication: TUBERCULOSIS
  7. TERIZIDONE [Suspect]
     Indication: TUBERCULOSIS
  8. PYRAZINAMIDE [Suspect]
     Indication: TUBERCULOSIS
  9. ISONIAZID [Suspect]
     Indication: TUBERCULOSIS

REACTIONS (7)
  - Multiple-drug resistance [None]
  - Imprisonment [None]
  - Therapy cessation [None]
  - Tuberculosis [None]
  - Gene mutation [None]
  - Haemoglobin decreased [None]
  - Virologic failure [None]
